FAERS Safety Report 14931614 (Version 1)
Quarter: 2018Q2

REPORT INFORMATION
  Report Type: Other
  Country: DE (occurrence: DE)
  Receive Date: 20180524
  Receipt Date: 20180524
  Transmission Date: 20180711
  Serious: Yes (Hospitalization)
  Sender: FDA-Public Use
  Company Number: DE-LUPIN PHARMACEUTICALS INC.-2017-07996

PATIENT
  Age: 34 Year
  Sex: Female
  Weight: 55 kg

DRUGS (6)
  1. OXYCODONE HYDROCHLORIDE. [Suspect]
     Active Substance: OXYCODONE HYDROCHLORIDE
     Indication: PAIN
     Dosage: 5 MG, BID
     Route: 048
     Dates: start: 20170524
  2. HDM201 [Suspect]
     Active Substance: INVESTIGATIONAL PRODUCT
     Indication: LIPOSARCOMA
     Dosage: 120 MG, Q4W
     Route: 048
     Dates: start: 20170426, end: 20170524
  3. HDM201 [Suspect]
     Active Substance: INVESTIGATIONAL PRODUCT
     Dosage: 120 MG, Q4W
     Route: 048
     Dates: start: 20170605
  4. RIBOCICLIB. [Suspect]
     Active Substance: RIBOCICLIB
     Indication: LIPOSARCOMA
     Dosage: 300 MG, 2 W ON, 2 W OFF DAILY
     Route: 048
     Dates: start: 20170426, end: 20170530
  5. OXYGESIC AKUT [Suspect]
     Active Substance: OXYCODONE
     Indication: PAIN
     Dosage: 5 MG, PRN
     Route: 065
     Dates: start: 20170524
  6. RIBOCICLIB. [Suspect]
     Active Substance: RIBOCICLIB
     Dosage: 300 MG, 2 W ON, 2 W OFF DAILY
     Route: 048
     Dates: start: 20170605

REACTIONS (1)
  - Constipation [Recovered/Resolved]

NARRATIVE: CASE EVENT DATE: 20170531
